FAERS Safety Report 19176273 (Version 1)
Quarter: 2021Q2

REPORT INFORMATION
  Report Type: Spontaneous
  Country: US (occurrence: US)
  Receive Date: 20210423
  Receipt Date: 20210423
  Transmission Date: 20210717
  Serious: No
  Sender: FDA-Public Use
  Company Number: US-SEAGEN-2021SGN01515

PATIENT
  Sex: Female

DRUGS (3)
  1. NERLYNX [Concomitant]
     Active Substance: NERATINIB
  2. ERIBULIN [Concomitant]
     Active Substance: ERIBULIN
  3. TUKYSA [Suspect]
     Active Substance: TUCATINIB
     Indication: BREAST CANCER
     Route: 048

REACTIONS (1)
  - Therapy cessation [Unknown]
